FAERS Safety Report 20416434 (Version 6)
Quarter: 2022Q2

REPORT INFORMATION
  Report Type: Report from Study
  Country: US (occurrence: US)
  Receive Date: 20220202
  Receipt Date: 20220530
  Transmission Date: 20220721
  Serious: Yes (Death, Hospitalization, Other)
  Sender: FDA-Public Use
  Company Number: US-TAKEDA-2021TUS082320

PATIENT
  Age: 80 Year
  Sex: Female
  Weight: 45.351 kg

DRUGS (20)
  1. MOBOCERTINIB [Suspect]
     Active Substance: MOBOCERTINIB
     Indication: Lung neoplasm malignant
     Dosage: 80 MILLIGRAM
     Route: 065
     Dates: start: 20211215, end: 20211217
  2. MOBOCERTINIB [Suspect]
     Active Substance: MOBOCERTINIB
     Indication: Lung adenocarcinoma
     Dosage: 80 MILLIGRAM, QD
     Route: 065
     Dates: start: 20220109
  3. MOBOCERTINIB [Suspect]
     Active Substance: MOBOCERTINIB
     Dosage: 120 MILLIGRAM, QD
     Route: 065
  4. MOBOCERTINIB [Suspect]
     Active Substance: MOBOCERTINIB
     Dosage: 40 MILLIGRAM
     Route: 065
     Dates: start: 20220214
  5. MOBOCERTINIB [Suspect]
     Active Substance: MOBOCERTINIB
     Dosage: 40 MILLIGRAM, QD
     Route: 065
     Dates: start: 20220215
  6. MOBOCERTINIB [Suspect]
     Active Substance: MOBOCERTINIB
     Dosage: 160 MILLIGRAM, QD
     Route: 065
  7. IMODIUM [Concomitant]
     Active Substance: LOPERAMIDE HYDROCHLORIDE
     Dosage: UNK
     Route: 065
  8. KEPPRA [Concomitant]
     Active Substance: LEVETIRACETAM
     Dosage: UNK
     Route: 065
  9. LOMOTIL [Concomitant]
     Active Substance: ATROPINE SULFATE\DIPHENOXYLATE HYDROCHLORIDE
     Dosage: UNK
     Route: 065
  10. PANTOPRAZOLE [Concomitant]
     Active Substance: PANTOPRAZOLE
     Dosage: UNK
     Route: 065
  11. BENTYL [Concomitant]
     Active Substance: DICYCLOMINE HYDROCHLORIDE
     Dosage: UNK
     Route: 065
  12. ZOFRAN [Concomitant]
     Active Substance: ONDANSETRON HYDROCHLORIDE
     Indication: Vomiting
     Dosage: UNK
     Route: 065
  13. ZOFRAN [Concomitant]
     Active Substance: ONDANSETRON HYDROCHLORIDE
     Indication: Nausea
  14. REGLAN [Concomitant]
     Active Substance: METOCLOPRAMIDE HYDROCHLORIDE
     Indication: Nausea
     Dosage: UNK
     Route: 065
  15. REGLAN [Concomitant]
     Active Substance: METOCLOPRAMIDE HYDROCHLORIDE
     Indication: Vomiting
  16. VITAMIN C [Concomitant]
     Active Substance: ASCORBIC ACID
  17. VITAMIN D [Concomitant]
     Active Substance: VITAMIN D NOS
  18. VITAMIN K [Concomitant]
     Active Substance: PHYTONADIONE
  19. BENADRYL [Concomitant]
     Active Substance: DIPHENHYDRAMINE HYDROCHLORIDE
     Indication: Pruritus
  20. KENALOG [Concomitant]
     Active Substance: TRIAMCINOLONE ACETONIDE
     Dosage: UNK
     Route: 065

REACTIONS (9)
  - Death [Fatal]
  - COVID-19 [Fatal]
  - Clostridium difficile colitis [Recovered/Resolved]
  - Malaise [Unknown]
  - Pruritus [Unknown]
  - Rash [Unknown]
  - Vomiting [Unknown]
  - Nausea [Unknown]
  - Incorrect dose administered [Unknown]

NARRATIVE: CASE EVENT DATE: 20211227
